FAERS Safety Report 22921241 (Version 2)
Quarter: 2023Q4

REPORT INFORMATION
  Report Type: Report from Study
  Country: CA (occurrence: CA)
  Receive Date: 20230908
  Receipt Date: 20231002
  Transmission Date: 20240109
  Serious: Yes (Death, Other)
  Sender: FDA-Public Use
  Company Number: CA-002147023-NVSC2022CA074279

PATIENT
  Sex: Male
  Weight: 79.365 kg

DRUGS (3)
  1. HYRIMOZ [Suspect]
     Active Substance: ADALIMUMAB-ADAZ
     Dosage: 40 MG, QW
     Route: 058
  2. HYRIMOZ [Suspect]
     Active Substance: ADALIMUMAB-ADAZ
     Dosage: 40 MG, QW (LAST WEEK)
     Route: 058
  3. HYRIMOZ [Suspect]
     Active Substance: ADALIMUMAB-ADAZ
     Indication: Crohn^s disease
     Dosage: 40 MG
     Route: 058
     Dates: start: 20210907

REACTIONS (15)
  - Death [Fatal]
  - Diarrhoea haemorrhagic [Unknown]
  - Haematochezia [Not Recovered/Not Resolved]
  - Pyoderma gangrenosum [Unknown]
  - Uveitis [Unknown]
  - Intestinal fistula [Unknown]
  - Frequent bowel movements [Not Recovered/Not Resolved]
  - Arthralgia [Unknown]
  - Erythema nodosum [Unknown]
  - Aphthous ulcer [Unknown]
  - Anal fissure [Unknown]
  - Abscess [Unknown]
  - Haemoglobin decreased [Unknown]
  - Product dose omission issue [Not Recovered/Not Resolved]
  - Intentional dose omission [Unknown]
